FAERS Safety Report 18316004 (Version 1)
Quarter: 2020Q3

REPORT INFORMATION
  Report Type: Spontaneous
  Country: NL (occurrence: NL)
  Receive Date: 20200927
  Receipt Date: 20200927
  Transmission Date: 20201103
  Serious: Yes (Disabling)
  Sender: FDA-Public Use
  Company Number: NL-TEVA-2020-NL-1831641

PATIENT
  Sex: Male
  Weight: 90 kg

DRUGS (7)
  1. ALPRAZOLAM TABLET MGA 2MG / BRAND NAME NOT SPECIFIED [Concomitant]
     Active Substance: ALPRAZOLAM
     Dosage: 2 MILLIGRAM, 2MG DD, THERAPY START DATE  AND THERAPY END DATE: ASKU
  2. METOPROLOL TABLET MGA 25MG (SUCCINATE) / BRAND NAME NOT SPECIFIED [Concomitant]
     Active Substance: METOPROLOL SUCCINATE
     Dosage: THERAPY START DATE  AND THERAPY END DATE: ASKU
  3. AMITRIPTYLINE HYDROCHLORIDE / BRAND NAME NOT SPECIFIED [Concomitant]
     Active Substance: AMITRIPTYLINE HYDROCHLORIDE
     Dosage: 100MG, THERAPY START DATE  AND THERAPY END DATE: ASKU
  4. SIMVASTATINE TABLET FO 10MG / BRAND NAME NOT SPECIFIED [Suspect]
     Active Substance: SIMVASTATIN
     Dosage: 1XDD 10 MILLIGRAM, THERAPY END DATE: ASKU
     Dates: start: 2010
  5. SIMVASTATINE TABLET FO 10MG / BRAND NAME NOT SPECIFIED [Suspect]
     Active Substance: SIMVASTATIN
     Indication: LOW DENSITY LIPOPROTEIN INCREASED
     Dosage: 20 MILLIGRAM, IN 2019 DOSE WAS INCREASED TO 20MG
     Dates: start: 2019, end: 20200701
  6. LORMETAZEPAM TABLET [Concomitant]
     Active Substance: LORMETAZEPAM
     Dosage: 2 MILLIGRAM, 2 MG DD, THERAPY START DATE  AND THERAPY END DATE: ASKU
  7. LISINOPRIL TABLET 10MG / BRAND NAME NOT SPECIFIED [Concomitant]
     Active Substance: LISINOPRIL
     Dosage: 10 MG, THERAPY START DATE  AND THERAPY END DATE: ASKU

REACTIONS (2)
  - Cognitive disorder [Not Recovered/Not Resolved]
  - Axonal neuropathy [Not Recovered/Not Resolved]
